FAERS Safety Report 13077599 (Version 1)
Quarter: 2016Q4

REPORT INFORMATION
  Report Type: Spontaneous
  Country: US (occurrence: US)
  Receive Date: 20161231
  Receipt Date: 20161231
  Transmission Date: 20170207
  Serious: No
  Sender: FDA-Public Use
  Company Number: US-DRREDDYS-USA/USA/16/0083897

PATIENT
  Age: 41 Year
  Sex: Male

DRUGS (1)
  1. HABITROL [Suspect]
     Active Substance: NICOTINE
     Indication: TOBACCO USER
     Route: 065
     Dates: start: 20161003

REACTIONS (5)
  - Product adhesion issue [Unknown]
  - Anxiety [Unknown]
  - Overdose [Unknown]
  - Drug ineffective [Unknown]
  - Treatment noncompliance [Unknown]
